FAERS Safety Report 9225246 (Version 1)
Quarter: 2013Q2

REPORT INFORMATION
  Report Type: Spontaneous
  Country: US (occurrence: US)
  Receive Date: 20130411
  Receipt Date: 20130411
  Transmission Date: 20140414
  Serious: Yes (Hospitalization, Other)
  Sender: FDA-Public Use
  Company Number: PHEH2013US008016

PATIENT
  Sex: Male

DRUGS (4)
  1. DIOVAN [Suspect]
     Indication: BLOOD PRESSURE
     Dosage: 160 MG, DAILY
  2. DIOVAN [Suspect]
     Dosage: UNK UKN, UNK
  3. SIMVASTATIN [Concomitant]
  4. NITROSORBIT [Concomitant]

REACTIONS (9)
  - Cerebrovascular accident [Unknown]
  - Headache [Unknown]
  - Blindness [Unknown]
  - Choking [Unknown]
  - Aphasia [Unknown]
  - Hemiparesis [Unknown]
  - Amnesia [Unknown]
  - Cough [Unknown]
  - Drug ineffective [Unknown]
